FAERS Safety Report 14800241 (Version 1)
Quarter: 2018Q2

REPORT INFORMATION
  Report Type: Spontaneous
  Country: US (occurrence: US)
  Receive Date: 20180424
  Receipt Date: 20180424
  Transmission Date: 20180711
  Serious: No
  Sender: FDA-Public Use
  Company Number: US-PFIZER INC-2018164536

PATIENT
  Age: 88 Year
  Sex: Male

DRUGS (1)
  1. FLECTOR [Suspect]
     Active Substance: DICLOFENAC EPOLAMINE
     Indication: PAIN MANAGEMENT
     Dosage: UNK
     Dates: start: 20180324

REACTIONS (2)
  - Blood pressure increased [Unknown]
  - Application site pain [Unknown]

NARRATIVE: CASE EVENT DATE: 20180324
